FAERS Safety Report 23246828 (Version 2)
Quarter: 2024Q4

REPORT INFORMATION
  Report Type: Spontaneous
  Country: US (occurrence: US)
  Receive Date: 20231130
  Receipt Date: 20241122
  Transmission Date: 20250114
  Serious: No
  Sender: ALVOGEN
  Company Number: US-ALVOGEN-2023092135

PATIENT
  Sex: Male
  Weight: 58.9 kg

DRUGS (2)
  1. TERIPARATIDE [Suspect]
     Active Substance: TERIPARATIDE
     Indication: Product used for unknown indication
     Dosage: 250 UG/ML?EXPIRATION DATE: 31-AUG-2024
     Dates: start: 202307
  2. TERIPARATIDE [Suspect]
     Active Substance: TERIPARATIDE
     Indication: Product used for unknown indication
     Dosage: EXPIRATION: UU-SEP-2024?SN: 056531437061
     Dates: start: 2023

REACTIONS (4)
  - Device malfunction [Unknown]
  - Device defective [Unknown]
  - Device operational issue [Unknown]
  - Product use issue [Unknown]

NARRATIVE: CASE EVENT DATE: 20230729
